FAERS Safety Report 6464270-0 (Version None)
Quarter: 2009Q4

REPORT INFORMATION
  Report Type: 
  Country: None (occurrence: None)
  Receive Date: 20091201
  Receipt Date: 20091123
  Transmission Date: 20100525
  Serious: Yes (Life-Threatening, Hospitalization, Other)
  Sender: FDA-Public Use
  Company Number: GXKR2009GB12740

PATIENT
  Age: 58 Year
  Sex: Male

DRUGS (5)
  1. BACLOFEN (NGX) [Suspect]
     Dosage: UNK
     Route: 048
  2. MIRTAZAPINE (NGX) [Suspect]
     Route: 048
  3. SEROQUEL [Suspect]
     Route: 048
  4. GABAPENTIN [Concomitant]
     Route: 048
  5. MESALAZINE [Concomitant]
     Route: 048

REACTIONS (2)
  - DIABETES INSIPIDUS [None]
  - OVERDOSE [None]
